FAERS Safety Report 11522638 (Version 1)
Quarter: 2015Q3

REPORT INFORMATION
  Report Type: Spontaneous
  Country: US (occurrence: US)
  Receive Date: 20150903
  Receipt Date: 20150903
  Transmission Date: 20151125
  Serious: No
  Sender: FDA-Public Use
  Company Number: US-ELI_LILLY_AND_COMPANY-US201206007180

PATIENT
  Age: 33 Year
  Sex: Male
  Weight: 102.95 kg

DRUGS (2)
  1. NEXIUM [Concomitant]
     Active Substance: ESOMEPRAZOLE MAGNESIUM
  2. CYMBALTA [Suspect]
     Active Substance: DULOXETINE HYDROCHLORIDE
     Indication: DEPRESSION
     Dosage: 50 MG, QD
     Route: 048

REACTIONS (5)
  - Headache [Recovered/Resolved]
  - Tachyphrenia [Recovered/Resolved]
  - Insomnia [Unknown]
  - Feeling jittery [Unknown]
  - Dizziness [Recovered/Resolved]
